FAERS Safety Report 12134380 (Version 3)
Quarter: 2024Q1

REPORT INFORMATION
  Report Type: Spontaneous
  Country: US (occurrence: US)
  Receive Date: 20160301
  Receipt Date: 20240103
  Transmission Date: 20240409
  Serious: Yes (Hospitalization, Other)
  Sender: FDA-Public Use
  Company Number: US-JAZZ-2016-US-003758

PATIENT
  Age: 29 Year
  Sex: Male

DRUGS (8)
  1. XYREM [Suspect]
     Active Substance: SODIUM OXYBATE
     Indication: Product used for unknown indication
     Route: 048
  2. HEROIN [Suspect]
     Active Substance: DIAMORPHINE
     Indication: Product used for unknown indication
  3. MIRTAZAPINE [Concomitant]
     Active Substance: MIRTAZAPINE
     Indication: Product used for unknown indication
  4. QUETIAPINE [Concomitant]
     Active Substance: QUETIAPINE
     Indication: Product used for unknown indication
  5. CLONAZEPAM [Concomitant]
     Active Substance: CLONAZEPAM
     Indication: Product used for unknown indication
  6. PRAZOSIN [Concomitant]
     Active Substance: PRAZOSIN
     Indication: Product used for unknown indication
  7. PROPRANOLOL [Concomitant]
     Active Substance: PROPRANOLOL HYDROCHLORIDE
     Indication: Product used for unknown indication
  8. LAMOTRIGINE [Concomitant]
     Active Substance: LAMOTRIGINE
     Indication: Product used for unknown indication

REACTIONS (28)
  - Coma [Recovered/Resolved]
  - Acidosis [Recovered/Resolved]
  - Anion gap increased [Recovered/Resolved]
  - Blood creatinine increased [Recovered/Resolved]
  - Electrolyte imbalance [Recovered/Resolved]
  - Oliguria [Recovered/Resolved]
  - Anuria [Recovered/Resolved]
  - Stomatitis [Recovered/Resolved]
  - Rhabdomyolysis [Recovered/Resolved]
  - Dysarthria [Recovered/Resolved]
  - Tachycardia [Recovered/Resolved]
  - Chromaturia [Recovered/Resolved]
  - Pain [Recovered/Resolved]
  - Abdominal pain [Recovered/Resolved]
  - Hypertension [Recovered/Resolved]
  - Drug abuse [Unknown]
  - Unresponsive to stimuli [Unknown]
  - Fall [Unknown]
  - Lethargy [Unknown]
  - Agitation [Unknown]
  - Tenderness [Unknown]
  - Memory impairment [Unknown]
  - Oedema [Unknown]
  - Pain in extremity [Unknown]
  - Oral mucosal blistering [Unknown]
  - Arthralgia [Unknown]
  - Left atrial enlargement [Unknown]
  - Atelectasis [Unknown]
